FAERS Safety Report 7235902-4 (Version None)
Quarter: 2011Q1

REPORT INFORMATION
  Report Type: 
  Country: None (occurrence: None)
  Receive Date: 20110120
  Receipt Date: 20110120
  Transmission Date: 20110831
  Serious: No
  Sender: FDA-Public Use
  Company Number: GB-ROCHE-752951

PATIENT

DRUGS (1)
  1. TAMIFLU [Suspect]
     Route: 065

REACTIONS (2)
  - OVERDOSE [None]
  - BLOOD CREATINE PHOSPHOKINASE INCREASED [None]
